FAERS Safety Report 5241067-0 (Version None)
Quarter: 2007Q1

REPORT INFORMATION
  Report Type: 
  Country: None (occurrence: None)
  Receive Date: 20070214
  Receipt Date: 20070214
  Transmission Date: 20070707
  Serious: Yes (Hospitalization)
  Sender: FDA-Public Use
  Company Number: None

PATIENT
  Age: 66 Year
  Sex: Male
  Weight: 107 kg

DRUGS (1)
  1. VANCOMYCIN [Suspect]
     Indication: CELLULITIS STAPHYLOCOCCAL
     Dosage: 1.5 GM  Q12H  IV
     Route: 042
     Dates: start: 20070206, end: 20070207

REACTIONS (3)
  - BURNING SENSATION [None]
  - RASH GENERALISED [None]
  - RASH MACULO-PAPULAR [None]
